FAERS Safety Report 5241956-7 (Version None)
Quarter: 2007Q1

REPORT INFORMATION
  Report Type: 
  Country: None (occurrence: None)
  Receive Date: 20070220
  Receipt Date: 20070216
  Transmission Date: 20070707
  Serious: Yes (Death)
  Sender: FDA-Public Use
  Company Number: GB-BOEHRINGER INGELHEIM PHARMACEUTICALS, INC.-2007-UK-00585UK

PATIENT
  Sex: Male

DRUGS (6)
  1. SPIRIVA [Suspect]
     Route: 055
  2. ENALAPRIL MALEATE [Concomitant]
  3. ALENDRONATE SODIUM [Concomitant]
  4. SYMBICORT [Concomitant]
     Dosage: 400/12
     Route: 055
  5. LOZAPINE [Concomitant]
  6. CALCICHEW D3 FORTE [Concomitant]

REACTIONS (2)
  - BRONCHOPNEUMONIA [None]
  - CHRONIC OBSTRUCTIVE PULMONARY DISEASE [None]
